FAERS Safety Report 6674369-1 (Version None)
Quarter: 2010Q2

REPORT INFORMATION
  Report Type: 
  Country: None (occurrence: None)
  Receive Date: 20100409
  Receipt Date: 20100406
  Transmission Date: 20101027
  Serious: Yes (Disabling)
  Sender: FDA-Public Use
  Company Number: US-ASTRAZENECA-2010SE14927

PATIENT
  Age: 44 Year
  Sex: Male
  Weight: 102 kg

DRUGS (11)
  1. MEROPENEM [Suspect]
     Indication: INFECTED SKIN ULCER
     Route: 042
     Dates: start: 20100319
  2. ROSUVASTATIN [Concomitant]
  3. CYCLIZINE [Concomitant]
  4. DICLOFENAC SODIUM [Concomitant]
  5. DULOXETINE HYDROCHLORIDE [Concomitant]
  6. GABAPENTIN [Concomitant]
  7. INSULIN [Concomitant]
     Route: 040
  8. LINEZOLID [Concomitant]
  9. NEFOPAM [Concomitant]
  10. OXYCONTIN [Concomitant]
  11. OXYCODONE HCL [Concomitant]

REACTIONS (1)
  - MOUTH ULCERATION [None]
